FAERS Safety Report 21865575 (Version 2)
Quarter: 2023Q1

REPORT INFORMATION
  Report Type: Report from Study
  Country: ZA (occurrence: ZA)
  Receive Date: 20230116
  Receipt Date: 20230309
  Transmission Date: 20230418
  Serious: Yes (Death)
  Sender: FDA-Public Use
  Company Number: ZA-BAYER-2023A003910

PATIENT
  Sex: Male

DRUGS (18)
  1. EYLEA [Suspect]
     Active Substance: AFLIBERCEPT
     Indication: Age-related macular degeneration
     Dosage: BOTH EYES, SOLUTION FOR INJECTION IN PRE-FILLED SYRINGE, 40MG/ML
     Dates: start: 20200306, end: 20200306
  2. EYLEA [Suspect]
     Active Substance: AFLIBERCEPT
     Dosage: BOTH EYES, SOLUTION FOR INJECTION IN PRE-FILLED SYRINGE, 40MG/ML
     Dates: start: 20200505, end: 20200505
  3. EYLEA [Suspect]
     Active Substance: AFLIBERCEPT
     Dosage: BOTH EYES, SOLUTION FOR INJECTION IN PRE-FILLED SYRINGE, 40MG/ML
     Dates: start: 20200714, end: 20200714
  4. EYLEA [Suspect]
     Active Substance: AFLIBERCEPT
     Dosage: BOTH EYES, SOLUTION FOR INJECTION IN PRE-FILLED SYRINGE, 40MG/ML
     Dates: start: 20200831, end: 20200831
  5. EYLEA [Suspect]
     Active Substance: AFLIBERCEPT
     Dosage: BOTH EYES, SOLUTION FOR INJECTION IN PRE-FILLED SYRINGE, 40MG/ML
     Dates: start: 20201026, end: 20201026
  6. EYLEA [Suspect]
     Active Substance: AFLIBERCEPT
     Dosage: BOTH EYES, SOLUTION FOR INJECTION IN PRE-FILLED SYRINGE, 40MG/ML
     Dates: start: 20201228, end: 20201228
  7. EYLEA [Suspect]
     Active Substance: AFLIBERCEPT
     Dosage: BOTH EYES, SOLUTION FOR INJECTION IN PRE-FILLED SYRINGE, 40MG/ML
     Dates: start: 20210223, end: 20210223
  8. EYLEA [Suspect]
     Active Substance: AFLIBERCEPT
     Dosage: BOTH EYES, SOLUTION FOR INJECTION IN PRE-FILLED SYRINGE, 40MG/ML
     Dates: start: 20210422, end: 20210422
  9. EYLEA [Suspect]
     Active Substance: AFLIBERCEPT
     Dosage: BOTH EYES, SOLUTION FOR INJECTION IN PRE-FILLED SYRINGE, 40MG/ML
     Dates: start: 20210617, end: 20210617
  10. EYLEA [Suspect]
     Active Substance: AFLIBERCEPT
     Dosage: BOTH EYES, SOLUTION FOR INJECTION IN PRE-FILLED SYRINGE, 40MG/ML
     Dates: start: 20210812, end: 20210812
  11. EYLEA [Suspect]
     Active Substance: AFLIBERCEPT
     Dosage: BOTH EYES, SOLUTION FOR INJECTION IN PRE-FILLED SYRINGE, 40MG/ML
     Dates: start: 20211008, end: 20211008
  12. EYLEA [Suspect]
     Active Substance: AFLIBERCEPT
     Dosage: BOTH EYES, SOLUTION FOR INJECTION IN PRE-FILLED SYRINGE, 40MG/ML
     Dates: start: 20211201, end: 20211201
  13. EYLEA [Suspect]
     Active Substance: AFLIBERCEPT
     Dosage: BOTH EYES, SOLUTION FOR INJECTION IN PRE-FILLED SYRINGE, 40MG/ML
     Dates: start: 20220125, end: 20220125
  14. EYLEA [Suspect]
     Active Substance: AFLIBERCEPT
     Dosage: BOTH EYES, SOLUTION FOR INJECTION IN PRE-FILLED SYRINGE, 40MG/ML
     Dates: start: 20220318, end: 20220318
  15. EYLEA [Suspect]
     Active Substance: AFLIBERCEPT
     Dosage: BOTH EYES, SOLUTION FOR INJECTION IN PRE-FILLED SYRINGE, 40MG/ML
     Dates: start: 20220808, end: 20220808
  16. EYLEA [Suspect]
     Active Substance: AFLIBERCEPT
     Dosage: BOTH EYES, SOLUTION FOR INJECTION IN PRE-FILLED SYRINGE, 40MG/ML
     Dates: start: 20221031, end: 20221031
  17. WARFARIN [Concomitant]
     Active Substance: WARFARIN
     Indication: Product used for unknown indication
  18. XALATAN [Concomitant]
     Active Substance: LATANOPROST
     Indication: Glaucoma

REACTIONS (2)
  - Pneumonia [Fatal]
  - Cerebrovascular accident [Fatal]
